FAERS Safety Report 5905988-5 (Version None)
Quarter: 2008Q3

REPORT INFORMATION
  Report Type: 
  Country: None (occurrence: None)
  Receive Date: 20080930
  Receipt Date: 20080916
  Transmission Date: 20090109
  Serious: Yes (Hospitalization)
  Sender: FDA-Public Use
  Company Number: FABR-1000431

PATIENT
  Age: 53 Year
  Sex: Female
  Weight: 134 kg

DRUGS (10)
  1. FABRAZYME [Suspect]
     Indication: FABRY'S DISEASE
     Dosage: INTRAVENOUS
     Route: 042
     Dates: start: 20040527
  2. METOPROLOL TARTRATE [Concomitant]
  3. LASIX [Concomitant]
  4. PERINDOPRIL ERBUMINE [Concomitant]
  5. NEXIUM (ESOMEPRAZOLE SODIUM) [Concomitant]
  6. SPIRIVA [Concomitant]
  7. VENTOLIN (SALBUTAMOL SULFATE) [Concomitant]
  8. MICARDIS [Concomitant]
  9. NITRODERM [Concomitant]
  10. ANECTINE [Concomitant]

REACTIONS (4)
  - DYSPNOEA [None]
  - FLUID OVERLOAD [None]
  - LOWER RESPIRATORY TRACT INFECTION [None]
  - OEDEMA PERIPHERAL [None]
